FAERS Safety Report 12226038 (Version 1)
Quarter: 2016Q1

REPORT INFORMATION
  Report Type: Spontaneous
  Country: PH (occurrence: PH)
  Receive Date: 20160331
  Receipt Date: 20160331
  Transmission Date: 20160526
  Serious: Yes (Hospitalization)
  Sender: FDA-Public Use
  Company Number: PH-009507513-1603PHL009536

PATIENT
  Sex: Male

DRUGS (3)
  1. ANGIOMAX [Concomitant]
     Active Substance: BIVALIRUDIN
     Indication: CARDIAC DISORDER
  2. ATORVASTATIN [Concomitant]
     Active Substance: ATORVASTATIN
     Indication: BLOOD CHOLESTEROL INCREASED
  3. JANUVIA [Suspect]
     Active Substance: SITAGLIPTIN PHOSPHATE
     Indication: DIABETES MELLITUS
     Dosage: 100 MG ONCE DAILY
     Route: 048

REACTIONS (2)
  - Dyspnoea [Recovering/Resolving]
  - Pleural effusion [Recovering/Resolving]
